FAERS Safety Report 12393876 (Version 2)
Quarter: 2016Q2

REPORT INFORMATION
  Report Type: Spontaneous
  Country: GB (occurrence: GB)
  Receive Date: 20160523
  Receipt Date: 20160524
  Transmission Date: 20160815
  Serious: Yes (Other)
  Sender: FDA-Public Use
  Company Number: GB-PFIZER INC-2007329737

PATIENT
  Age: 78 Year
  Sex: Male

DRUGS (1)
  1. IBUPROFEN. [Suspect]
     Active Substance: IBUPROFEN
     Indication: INTENTIONAL PRODUCT MISUSE
     Dosage: 9.6 TO 16 GRAMS
     Route: 048

REACTIONS (3)
  - Blood urea increased [Unknown]
  - Intentional overdose [Unknown]
  - Blood creatinine increased [Unknown]
